FAERS Safety Report 15110482 (Version 1)
Quarter: 2018Q2

REPORT INFORMATION
  Report Type: Spontaneous
  Country: US (occurrence: US)
  Receive Date: 20180612
  Receipt Date: 20180612
  Transmission Date: 20180711
  Serious: Yes (Other)
  Sender: FDA-Public Use
  Company Number: None

PATIENT
  Age: 33 Year
  Sex: Female
  Weight: 69.75 kg

DRUGS (1)
  1. METHYLPHENIDATE HCL 54MG SUBSTITUTE FOR CONCERTA 54 [Suspect]
     Active Substance: METHYLPHENIDATE HYDROCHLORIDE
     Indication: ATTENTION DEFICIT/HYPERACTIVITY DISORDER
     Dosage: ?          QUANTITY:1 TABLET(S);?
     Route: 048
     Dates: start: 20180201, end: 20180401

REACTIONS (4)
  - Therapeutic response changed [None]
  - Depression [None]
  - Attention deficit/hyperactivity disorder [None]
  - Product substitution issue [None]

NARRATIVE: CASE EVENT DATE: 20180201
